FAERS Safety Report 8232585-1 (Version None)
Quarter: 2012Q1

REPORT INFORMATION
  Report Type: 
  Country: None (occurrence: None)
  Receive Date: 20120323
  Receipt Date: 20120309
  Transmission Date: 20120608
  Serious: Yes (Other)
  Sender: FDA-Public Use
  Company Number: AU-WATSON-2012-05135

PATIENT
  Age: 25 Year
  Sex: Female

DRUGS (2)
  1. DIAZEPAM [Suspect]
     Indication: AKATHISIA
     Route: 048
  2. CANNABIS [Suspect]
     Indication: PRODUCT USED FOR UNKNOWN INDICATION

REACTIONS (4)
  - ATTENTION-SEEKING BEHAVIOUR [None]
  - DEPENDENCE [None]
  - SELF-INJURIOUS IDEATION [None]
  - SUICIDE ATTEMPT [None]
